FAERS Safety Report 5733627-5 (Version None)
Quarter: 2008Q2

REPORT INFORMATION
  Report Type: 
  Country: None (occurrence: None)
  Receive Date: 20080509
  Receipt Date: 20080428
  Transmission Date: 20081010
  Serious: Yes (Other)
  Sender: FDA-Public Use
  Company Number: CA-ROCHE-558655

PATIENT
  Sex: Male

DRUGS (12)
  1. PEGASYS [Suspect]
     Indication: HEPATITIS C
     Route: 058
     Dates: start: 20080328
  2. COPEGUS [Suspect]
     Indication: HEPATITIS C
     Route: 048
     Dates: start: 20080328
  3. 1 CONCOMITANT DRUG [Concomitant]
     Indication: ANGER
     Route: 048
  4. MULTI-VITAMIN [Concomitant]
     Route: 048
  5. OMEGA 369 [Concomitant]
     Dosage: DOSAGE: 1 X OD
  6. OMEGA 369 [Concomitant]
     Dosage: DOSAGE: 1 X OD
  7. OMEGA 369 [Concomitant]
     Dosage: DOSAGE: 1 X OD
  8. PROPRANOLOL [Concomitant]
     Indication: HYPERTENSION
     Route: 048
     Dates: start: 20040101
  9. ATARAX [Concomitant]
     Indication: ANXIETY
     Route: 048
  10. EFFEXOR [Concomitant]
     Indication: ANXIETY
     Route: 048
  11. FLOMAX [Concomitant]
     Route: 048
  12. FLOMAX [Concomitant]
     Route: 048

REACTIONS (6)
  - GINGIVITIS [None]
  - PAIN [None]
  - PHARYNGEAL OEDEMA [None]
  - PHARYNGOLARYNGEAL PAIN [None]
  - SWOLLEN TONGUE [None]
  - TONGUE INJURY [None]
